FAERS Safety Report 10600268 (Version 1)
Quarter: 2014Q4

REPORT INFORMATION
  Report Type: Other
  Country: GB (occurrence: GB)
  Receive Date: 20141123
  Receipt Date: 20141123
  Transmission Date: 20150529
  Serious: Yes (Hospitalization)
  Sender: FDA-Public Use
  Company Number: GB-MYLANLABS-2014M1010636

PATIENT

DRUGS (12)
  1. CLOZAPINE. [Concomitant]
     Active Substance: CLOZAPINE
  2. QVAR [Concomitant]
     Active Substance: BECLOMETHASONE DIPROPIONATE
  3. MULTIVITAMIN                       /00097801/ [Concomitant]
     Active Substance: VITAMINS
  4. CLARITHROMYCIN. [Suspect]
     Active Substance: CLARITHROMYCIN
     Indication: TOOTH ABSCESS
     Dosage: 500 MG, BID
     Route: 048
     Dates: start: 20141020, end: 20141027
  5. COD LIVER OIL [Concomitant]
     Active Substance: COD LIVER OIL
  6. IBUPROFEN. [Concomitant]
     Active Substance: IBUPROFEN
  7. HALOPERIDOL. [Concomitant]
     Active Substance: HALOPERIDOL
  8. SALBUTAMOL [Concomitant]
     Active Substance: ALBUTEROL
  9. LORAZEPAM. [Concomitant]
     Active Substance: LORAZEPAM
  10. GAVISCON [Concomitant]
     Active Substance: ALUMINUM HYDROXIDE\MAGNESIUM CARBONATE
  11. METFORMIN [Concomitant]
     Active Substance: METFORMIN HYDROCHLORIDE
  12. PARACETAMOL [Concomitant]
     Active Substance: ACETAMINOPHEN

REACTIONS (3)
  - Dysarthria [Recovered/Resolved]
  - Confusional state [Recovered/Resolved]
  - Mental impairment [Unknown]

NARRATIVE: CASE EVENT DATE: 20141024
